FAERS Safety Report 5106353-3 (Version None)
Quarter: 2006Q3

REPORT INFORMATION
  Report Type: 
  Country: None (occurrence: None)
  Receive Date: 20060918
  Receipt Date: 20060821
  Transmission Date: 20061208
  Serious: Yes (Death, Hospitalization)
  Sender: FDA-Public Use
  Company Number: FR-AVENTIS-200612949FR

PATIENT
  Age: 74 Year
  Sex: Female
  Weight: 88 kg

DRUGS (1)
  1. TAXOTERE [Suspect]
     Indication: BREAST CANCER METASTATIC
     Route: 042
     Dates: start: 20060414, end: 20060622

REACTIONS (5)
  - HAEMATOMA [None]
  - INTERSTITIAL LUNG DISEASE [None]
  - NAIL DYSTROPHY [None]
  - OEDEMA PERIPHERAL [None]
  - PULMONARY EMBOLISM [None]
